FAERS Safety Report 22194838 (Version 4)
Quarter: 2025Q1

REPORT INFORMATION
  Report Type: Report from Study
  Country: US (occurrence: US)
  Receive Date: 20230411
  Receipt Date: 20250206
  Transmission Date: 20250409
  Serious: No
  Sender: GLAXOSMITHKLINE
  Company Number: US-GLAXOSMITHKLINE-US2023AMR051819

PATIENT

DRUGS (2)
  1. NIRAPARIB [Suspect]
     Active Substance: NIRAPARIB
     Indication: Depression
  2. NIRAPARIB [Suspect]
     Active Substance: NIRAPARIB
     Indication: Depression

REACTIONS (1)
  - Off label use [Unknown]
